FAERS Safety Report 19473137 (Version 1)
Quarter: 2021Q2

REPORT INFORMATION
  Report Type: Spontaneous
  Country: AT (occurrence: AT)
  Receive Date: 20210629
  Receipt Date: 20210629
  Transmission Date: 20210717
  Serious: Yes (Other)
  Sender: FDA-Public Use
  Company Number: AT-ASTRAZENECA-2021A557914

PATIENT
  Sex: Female

DRUGS (16)
  1. CARBOPLATIN. [Concomitant]
     Active Substance: CARBOPLATIN
     Dosage: 6 CYCLES
     Route: 065
     Dates: end: 201812
  2. CALYPSO [Concomitant]
     Route: 065
     Dates: start: 201808
  3. AVASTIN [Concomitant]
     Active Substance: BEVACIZUMAB
     Route: 065
  4. BEVACIZUMAB. [Concomitant]
     Active Substance: BEVACIZUMAB
     Dosage: PLUS 22X15MG/KG
     Route: 065
     Dates: start: 201608
  5. LYNPARZA [Suspect]
     Active Substance: OLAPARIB
     Dosage: DOSE 100MG 2?0?2
     Route: 048
     Dates: start: 201902
  6. CARBOPLATIN. [Concomitant]
     Active Substance: CARBOPLATIN
     Dosage: 6 CYCLES
     Route: 065
     Dates: start: 201504, end: 201507
  7. CARBOPLATIN. [Concomitant]
     Active Substance: CARBOPLATIN
     Route: 065
     Dates: start: 201808
  8. CALYPSO [Concomitant]
     Route: 065
     Dates: end: 201812
  9. GEMCITABINE. [Concomitant]
     Active Substance: GEMCITABINE
     Dosage: 1000MG/SQUARE METER D1.8 (5 CYCLES) UNTIL 12/2018 QUESTIONABLE ALLERGIC REACTION
     Route: 065
     Dates: end: 201812
  10. LYNPARZA [Suspect]
     Active Substance: OLAPARIB
     Route: 048
     Dates: start: 201808
  11. INOVATYON [Concomitant]
     Dosage: 1.1 MG/M??/ PEGYLATED LIPOSOMAL DOXORUBICIN D21
     Route: 065
     Dates: end: 201709
  12. CALYPSO [Concomitant]
     Route: 065
     Dates: start: 202010
  13. AVASTIN [Concomitant]
     Active Substance: BEVACIZUMAB
     Route: 065
     Dates: start: 202010
  14. GEMCITABINE. [Concomitant]
     Active Substance: GEMCITABINE
     Route: 065
     Dates: start: 201808
  15. CARBOPLATIN. [Concomitant]
     Active Substance: CARBOPLATIN
     Route: 065
     Dates: start: 202010
  16. PACLITAXEL. [Concomitant]
     Active Substance: PACLITAXEL
     Dosage: 6 CYCLES
     Route: 065
     Dates: start: 201504, end: 201507

REACTIONS (1)
  - Malignant neoplasm progression [Unknown]
